FAERS Safety Report 15034769 (Version 2)
Quarter: 2018Q3

REPORT INFORMATION
  Report Type: Spontaneous
  Country: BR (occurrence: BR)
  Receive Date: 20180620
  Receipt Date: 20180725
  Transmission Date: 20181010
  Serious: Yes (Other)
  Sender: FDA-Public Use
  Company Number: BR-ASTRAZENECA-2018SE52252

PATIENT
  Sex: Female

DRUGS (2)
  1. LYNPARZA [Suspect]
     Active Substance: OLAPARIB
     Indication: BREAST CANCER
     Dosage: ONLY A FEW CAPSULES
     Route: 048
  2. LYNPARZA [Suspect]
     Active Substance: OLAPARIB
     Indication: BREAST CANCER
     Dosage: 8 CAPSULES, TWO TIMES A DAY
     Route: 048
     Dates: start: 201803, end: 201806

REACTIONS (3)
  - Off label use [Recovered/Resolved]
  - Anaemia [Recovered/Resolved]
  - Product use issue [Unknown]
